FAERS Safety Report 12561900 (Version 4)
Quarter: 2016Q3

REPORT INFORMATION
  Report Type: Report from Study
  Country: CA (occurrence: CA)
  Receive Date: 20160715
  Receipt Date: 20160729
  Transmission Date: 20161109
  Serious: Yes (Life-Threatening, Hospitalization, Other)
  Sender: FDA-Public Use
  Company Number: CA-JNJFOC-20150718563

PATIENT
  Age: 71 Year
  Sex: Male

DRUGS (3)
  1. IMBRUVICA [Suspect]
     Active Substance: IBRUTINIB
     Indication: CHRONIC LYMPHOCYTIC LEUKAEMIA
     Route: 048
     Dates: start: 20160610, end: 20160715
  2. IMBRUVICA [Suspect]
     Active Substance: IBRUTINIB
     Indication: CHRONIC LYMPHOCYTIC LEUKAEMIA
     Route: 048
     Dates: start: 20150709, end: 20150925
  3. IMBRUVICA [Suspect]
     Active Substance: IBRUTINIB
     Indication: CHRONIC LYMPHOCYTIC LEUKAEMIA
     Route: 048
     Dates: start: 201506

REACTIONS (20)
  - Platelet count decreased [Not Recovered/Not Resolved]
  - Decreased appetite [Not Recovered/Not Resolved]
  - Haemorrhage [Not Recovered/Not Resolved]
  - Weight decreased [Not Recovered/Not Resolved]
  - Joint swelling [Unknown]
  - White blood cell count increased [Recovering/Resolving]
  - Rash erythematous [Not Recovered/Not Resolved]
  - Diarrhoea [Recovered/Resolved]
  - Gait disturbance [Not Recovered/Not Resolved]
  - Herpes virus infection [Unknown]
  - Night sweats [Not Recovered/Not Resolved]
  - Arrhythmia [Recovered/Resolved]
  - Nausea [Not Recovered/Not Resolved]
  - Lymphocytosis [Not Recovered/Not Resolved]
  - Blood pressure increased [Not Recovered/Not Resolved]
  - Pyrexia [Recovered/Resolved]
  - Peripheral swelling [Unknown]
  - Arthralgia [Recovered/Resolved]
  - Contusion [Not Recovered/Not Resolved]
  - Chills [Recovered/Resolved]

NARRATIVE: CASE EVENT DATE: 201507
